FAERS Safety Report 5370938-X (Version None)
Quarter: 2007Q2

REPORT INFORMATION
  Report Type: 
  Country: None (occurrence: None)
  Receive Date: 20070626
  Receipt Date: 20070417
  Transmission Date: 20071010
  Serious: Yes (Hospitalization, Other)
  Sender: FDA-Public Use
  Company Number: US-PFIZER INC-2007030951

PATIENT
  Sex: Female
  Weight: 109.09 kg

DRUGS (1)
  1. CHANTIX [Suspect]
     Indication: SMOKING CESSATION THERAPY
     Dosage: TEXT:EVERY DAY
     Route: 048
     Dates: start: 20070301

REACTIONS (8)
  - CHEST DISCOMFORT [None]
  - CORONARY ARTERY OCCLUSION [None]
  - DIZZINESS [None]
  - DYSPNOEA [None]
  - HYPOVENTILATION [None]
  - MYOCARDIAL INFARCTION [None]
  - RESPIRATORY RATE DECREASED [None]
  - THROMBOSIS [None]
